FAERS Safety Report 15651296 (Version 2)
Quarter: 2021Q3

REPORT INFORMATION
  Report Type: Spontaneous
  Country: GB (occurrence: GB)
  Receive Date: 20181123
  Receipt Date: 20210715
  Transmission Date: 20211014
  Serious: Yes (Other)
  Sender: FDA-Public Use
  Company Number: GB-GLAXOSMITHKLINE-GB2018GSK211875

PATIENT
  Sex: Male

DRUGS (1)
  1. AVANDIA [Suspect]
     Active Substance: ROSIGLITAZONE MALEATE
     Indication: PRODUCT USED FOR UNKNOWN INDICATION
     Dosage: UNK

REACTIONS (14)
  - Disability [Unknown]
  - Limb discomfort [Not Recovered/Not Resolved]
  - Nervous system injury [Not Recovered/Not Resolved]
  - Adverse drug reaction [Unknown]
  - Tinnitus [Not Recovered/Not Resolved]
  - Tremor [Unknown]
  - Blood glucose increased [Unknown]
  - Cough [Unknown]
  - Neuropathy peripheral [Not Recovered/Not Resolved]
  - Memory impairment [Unknown]
  - Back pain [Unknown]
  - Loss of personal independence in daily activities [Unknown]
  - Back pain [Recovered/Resolved]
  - Pain [Not Recovered/Not Resolved]
